FAERS Safety Report 5164400-7 (Version None)
Quarter: 2006Q4

REPORT INFORMATION
  Report Type: 
  Country: None (occurrence: None)
  Receive Date: 20061205
  Receipt Date: 20060906
  Transmission Date: 20070319
  Serious: Yes (Hospitalization)
  Sender: FDA-Public Use
  Company Number: PHMT2006CA01765

PATIENT
  Age: 53 Year
  Sex: Female

DRUGS (4)
  1. HYDROMORPHONE HCL [Concomitant]
     Dosage: CONTINUOUS SUBCUTANEOUS INFUSION
     Route: 058
  2. SANDOSTATIN LAR [Suspect]
     Indication: HAEMORRHAGE
     Dosage: 20 MG, UNK
     Route: 030
  3. FENTANYL [Concomitant]
  4. GRAVOL TAB [Concomitant]

REACTIONS (3)
  - BURNING SENSATION [None]
  - NERVE INJURY [None]
  - PAIN [None]
